FAERS Safety Report 4963753-X (Version None)
Quarter: 2006Q1

REPORT INFORMATION
  Report Type: 
  Country: None (occurrence: None)
  Receive Date: 20060330
  Receipt Date: 20060324
  Transmission Date: 20060701
  Serious: Yes (Disabling)
  Sender: FDA-Public Use
  Company Number: S06-FRA-00785-01

PATIENT
  Age: 85 Year
  Sex: Female
  Weight: 64 kg

DRUGS (2)
  1. MEMANTINE HCL [Suspect]
     Indication: DEMENTIA ALZHEIMER'S TYPE
     Dosage: 20 MG QD PO
     Route: 048
     Dates: start: 20050601, end: 20051206
  2. RYTHMOL [Concomitant]

REACTIONS (5)
  - ECZEMA NUMMULAR [None]
  - INSOMNIA [None]
  - LICHENIFICATION [None]
  - SKIN HAEMORRHAGE [None]
  - SKIN LACERATION [None]
